FAERS Safety Report 11770518 (Version 2)
Quarter: 2015Q4

REPORT INFORMATION
  Report Type: Spontaneous
  Country: US (occurrence: US)
  Receive Date: 20151123
  Receipt Date: 20151123
  Transmission Date: 20160304
  Serious: No
  Sender: FDA-Public Use
  Company Number: US-PERRIGO-15US010092

PATIENT
  Sex: Female
  Weight: 52.61 kg

DRUGS (3)
  1. POLYETHYLENE GLYCOL 3350. [Suspect]
     Active Substance: POLYETHYLENE GLYCOL 3350
     Indication: CONSTIPATION
     Dosage: 17 G, QOD TO EVERY 3 DAYS
     Route: 048
     Dates: start: 2013, end: 201508
  2. POLYETHYLENE GLYCOL 3350. [Suspect]
     Active Substance: POLYETHYLENE GLYCOL 3350
     Dosage: 17 G, QOD TO EVERY 3 DAYS
     Route: 048
     Dates: start: 201509
  3. POLYETHYLENE GLYCOL 3350. [Suspect]
     Active Substance: POLYETHYLENE GLYCOL 3350
     Dosage: 17 G, QOD TO EVERY 3 DAYS
     Route: 048
     Dates: start: 201508, end: 201508

REACTIONS (2)
  - Drug administered to patient of inappropriate age [Unknown]
  - Product taste abnormal [Recovered/Resolved]

NARRATIVE: CASE EVENT DATE: 2013
